FAERS Safety Report 12372417 (Version 2)
Quarter: 2016Q3

REPORT INFORMATION
  Report Type: Spontaneous
  Country: CH (occurrence: CH)
  Receive Date: 20160516
  Receipt Date: 20160721
  Transmission Date: 20161109
  Serious: Yes (Other)
  Sender: FDA-Public Use
  Company Number: CH-TEVA-657707ISR

PATIENT
  Age: 46 Year
  Sex: Male

DRUGS (3)
  1. DOXYLAMIN/PARACETAMOL [Suspect]
     Active Substance: ACETAMINOPHEN\DOXYLAMINE
     Dosage: OTC-PREPARATION, TOOK 240ML COMBINED DEXTROMETHORPHAN PER NIGHT
     Route: 065
  2. DEXTROMETHORPHAN [Interacting]
     Active Substance: DEXTROMETHORPHAN
     Route: 065
  3. SERTRALINE [Suspect]
     Active Substance: SERTRALINE HYDROCHLORIDE
     Indication: DEPRESSION
     Dosage: 100 MILLIGRAM DAILY;
     Route: 065

REACTIONS (3)
  - Drug interaction [Unknown]
  - Accidental overdose [Unknown]
  - Serotonin syndrome [Unknown]
